FAERS Safety Report 19894882 (Version 1)
Quarter: 2021Q3

REPORT INFORMATION
  Report Type: Spontaneous
  Country: CA (occurrence: CA)
  Receive Date: 20210928
  Receipt Date: 20210928
  Transmission Date: 20211014
  Serious: Yes (Other)
  Sender: FDA-Public Use
  Company Number: CA-CELLTRION INC.-2021CA013043

PATIENT

DRUGS (3)
  1. INFLECTRA [Suspect]
     Active Substance: INFLIXIMAB-DYYB
     Dosage: 400 MG, EVERY 7 WEEK
     Route: 042
     Dates: start: 20190729, end: 20190729
  2. INFLECTRA [Suspect]
     Active Substance: INFLIXIMAB-DYYB
     Dosage: 400 MG, EVERY 6 WEEK
     Route: 042
     Dates: start: 20190903
  3. INFLECTRA [Suspect]
     Active Substance: INFLIXIMAB-DYYB
     Indication: CROHN^S DISEASE
     Dosage: 400 MG, EVERY 8 WEEKS, INDUCTION AT Q 0 , 2, 6 WEEK
     Route: 042
     Dates: start: 20171228, end: 20190408

REACTIONS (7)
  - Weight decreased [Unknown]
  - Diarrhoea [Unknown]
  - Gingivitis [Unknown]
  - Depression [Unknown]
  - Off label use [Unknown]
  - Tooth injury [Unknown]
  - Sleep disorder [Unknown]

NARRATIVE: CASE EVENT DATE: 20190729
